FAERS Safety Report 8844893 (Version 2)
Quarter: 2013Q2

REPORT INFORMATION
  Report Type: Report from Study
  Country: JP (occurrence: JP)
  Receive Date: 20121017
  Receipt Date: 20130528
  Transmission Date: 20140414
  Serious: Yes (Other)
  Sender: FDA-Public Use
  Company Number: JP-VERTEX PHARMACEUTICAL INC.-2012-022959

PATIENT
  Age: 58 Year
  Sex: Male

DRUGS (7)
  1. VX-950 (TELAPREVIR) [Suspect]
     Indication: CHRONIC HEPATITIS C
     Dosage: 1500 MG, QD
     Route: 048
     Dates: start: 20120809
  2. PEGINTERFERON ALFA-2B [Suspect]
     Indication: CHRONIC HEPATITIS C
     Dosage: 80 ?G, WEEKLY
     Route: 058
     Dates: start: 20120809, end: 20120815
  3. PEGINTERFERON ALFA-2B [Suspect]
     Dosage: 60 ?G,WEEKLY
     Route: 058
     Dates: start: 20120816, end: 20120912
  4. PEGINTERFERON ALFA-2B [Suspect]
     Dosage: 40 ?G, WEEKLY
     Route: 058
     Dates: start: 20120913, end: 20121004
  5. PEGINTERFERON ALFA-2B [Suspect]
     Dosage: 60 ?G
     Route: 058
     Dates: start: 20121018
  6. PEGINTERFERON ALFA-2B [Suspect]
     Dosage: 40 ?G
     Route: 058
     Dates: start: 20121025
  7. RIBAVIRIN [Concomitant]
     Dosage: 600 MG, QD
     Route: 048
     Dates: start: 20120809

REACTIONS (2)
  - Off label use [Unknown]
  - Neutrophil count decreased [Recovered/Resolved]
